FAERS Safety Report 8072745-6 (Version None)
Quarter: 2012Q1

REPORT INFORMATION
  Report Type: 
  Country: None (occurrence: None)
  Receive Date: 20120126
  Receipt Date: 20120124
  Transmission Date: 20120608
  Serious: Yes (Hospitalization)
  Sender: FDA-Public Use
  Company Number: GB-SANOFI-AVENTIS-2012SA004983

PATIENT
  Sex: Female

DRUGS (6)
  1. FUROSEMIDE [Suspect]
  2. AMIODARONE HCL [Concomitant]
  3. BISOPROLOL [Concomitant]
  4. BUMETANIDE [Suspect]
  5. DIGOXIN [Concomitant]
  6. WARFARIN SODIUM [Concomitant]

REACTIONS (1)
  - RENAL FAILURE ACUTE [None]
